FAERS Safety Report 10949359 (Version 1)
Quarter: 2015Q1

REPORT INFORMATION
  Report Type: Spontaneous
  Country: JP (occurrence: None)
  Receive Date: 20150320
  Receipt Date: 20150320
  Transmission Date: 20150721
  Serious: Yes (Life-Threatening)
  Sender: FDA-Public Use
  Company Number: 2015BRC00024

PATIENT
  Age: 89 Year
  Sex: Male

DRUGS (6)
  1. RAPIACTA [Suspect]
     Active Substance: PERAMIVIR
     Indication: INFLUENZA
     Route: 042
     Dates: start: 20150120, end: 20150120
  2. LASIX [Concomitant]
     Active Substance: FUROSEMIDE
  3. SENNOSIDE (SENNOSIDE) [Concomitant]
  4. MAGMITT (MAGNESIUM OXIDE) [Concomitant]
     Active Substance: MAGNESIUM OXIDE
  5. THYRADIN S (LEVOTHYROXINE SODIUM HYDRATE) [Concomitant]
  6. SELBEX (TEPRENONE) [Concomitant]
     Active Substance: TEPRENONE

REACTIONS (1)
  - Brain stem infarction [None]

NARRATIVE: CASE EVENT DATE: 20150120
